FAERS Safety Report 13600985 (Version 1)
Quarter: 2017Q2

REPORT INFORMATION
  Report Type: Spontaneous
  Country: US (occurrence: US)
  Receive Date: 20170601
  Receipt Date: 20170601
  Transmission Date: 20170830
  Serious: Yes (Death, Hospitalization)
  Sender: FDA-Public Use
  Company Number: US-STRIDES ARCOLAB LIMITED-2017SP008993

PATIENT

DRUGS (4)
  1. MYCOPHENOLATE MOFETIL. [Suspect]
     Active Substance: MYCOPHENOLATE MOFETIL
     Indication: RENAL TRANSPLANT
     Dosage: 1080 MG, PER DAY
     Route: 048
  2. THYMOGLOBULIN [Suspect]
     Active Substance: LAPINE T-LYMPHOCYTE IMMUNE GLOBULIN
     Indication: RENAL TRANSPLANT
     Dosage: 1.5 MG/KG
     Route: 065
  3. RITUXIMAB [Suspect]
     Active Substance: RITUXIMAB
     Indication: FOCAL SEGMENTAL GLOMERULOSCLEROSIS
     Dosage: 350 MG, QD
     Route: 065
  4. TACROLIMUS. [Suspect]
     Active Substance: TACROLIMUS
     Indication: RENAL TRANSPLANT
     Dosage: UNK
     Route: 065

REACTIONS (14)
  - Clostridial infection [Unknown]
  - Pneumoperitoneum [Unknown]
  - Coagulopathy [Unknown]
  - Pyrexia [Unknown]
  - Haemolysis [Unknown]
  - Acute hepatic failure [Unknown]
  - Clostridial sepsis [Fatal]
  - Abdominal pain [Unknown]
  - Hyperkalaemia [Unknown]
  - Vomiting [Unknown]
  - Multiple organ dysfunction syndrome [Fatal]
  - Gas gangrene [Fatal]
  - Nausea [Unknown]
  - Hypotension [Unknown]
